FAERS Safety Report 21047869 (Version 1)
Quarter: 2022Q3

REPORT INFORMATION
  Report Type: Spontaneous
  Country: US (occurrence: None)
  Receive Date: 20220706
  Receipt Date: 20220706
  Transmission Date: 20221026
  Serious: No
  Sender: FDA-Public Use
  Company Number: 2022A221277

PATIENT
  Age: 76 Year
  Sex: Male

DRUGS (7)
  1. ROSUVASTATIN [Suspect]
     Active Substance: ROSUVASTATIN
     Route: 048
     Dates: start: 20220223, end: 202206
  2. PAXLOVID [Suspect]
     Active Substance: NIRMATRELVIR\RITONAVIR
     Indication: COVID-19 treatment
     Route: 065
     Dates: start: 20220325, end: 20220330
  3. LISINOPRIL [Concomitant]
     Active Substance: LISINOPRIL
     Route: 065
     Dates: start: 200001, end: 202206
  4. FINASTERIDE [Concomitant]
     Active Substance: FINASTERIDE
     Route: 065
     Dates: start: 20210120, end: 202206
  5. TAMSULOSIN [Concomitant]
     Active Substance: TAMSULOSIN
     Route: 065
     Dates: start: 201201, end: 202206
  6. TIMOLOL MALEATE [Concomitant]
     Active Substance: TIMOLOL MALEATE
     Route: 065
     Dates: start: 199501, end: 202206
  7. MODERNA [Concomitant]
     Dosage: ARM LEFT
     Route: 065
     Dates: start: 20210128, end: 20211124

REACTIONS (2)
  - SARS-CoV-2 test positive [Recovered/Resolved]
  - Hypersensitivity [Recovered/Resolved]

NARRATIVE: CASE EVENT DATE: 20220531
